FAERS Safety Report 4523395-7 (Version None)
Quarter: 2004Q4

REPORT INFORMATION
  Report Type: 
  Country: None (occurrence: None)
  Receive Date: 20041209
  Receipt Date: 20041124
  Transmission Date: 20050328
  Serious: Yes (Hospitalization)
  Sender: FDA-Public Use
  Company Number: 2004BI000244

PATIENT
  Age: 53 Year
  Sex: Female

DRUGS (5)
  1. AVONEX [Suspect]
     Indication: MULTIPLE SCLEROSIS
     Dosage: 30 UG; QW; IM
     Route: 030
     Dates: start: 19990101, end: 20030101
  2. AVONEX [Suspect]
     Indication: MULTIPLE SCLEROSIS
     Dosage: 30 UG; QW; IM
     Route: 030
     Dates: start: 20030101, end: 20040819
  3. PROZAC [Concomitant]
  4. MECLOZINE HCL [Concomitant]
  5. CALCIUM [Concomitant]

REACTIONS (6)
  - DIZZINESS [None]
  - FALL [None]
  - FEELING ABNORMAL [None]
  - FEMUR FRACTURE [None]
  - ILL-DEFINED DISORDER [None]
  - POST PROCEDURAL COMPLICATION [None]
